FAERS Safety Report 5224776-9 (Version None)
Quarter: 2007Q1

REPORT INFORMATION
  Report Type: 
  Country: None (occurrence: None)
  Receive Date: 20070131
  Receipt Date: 20070118
  Transmission Date: 20070707
  Serious: Yes (Other)
  Sender: FDA-Public Use
  Company Number: PHFR2007GB00594

PATIENT
  Age: 65 Year
  Sex: Female
  Weight: 65 kg

DRUGS (6)
  1. OXCARBAZEPINE [Suspect]
     Dosage: 1800MG
     Route: 048
  2. SECURON [Suspect]
     Dosage: 240MG
     Route: 048
  3. ACETYLSALICYLIC ACID [Concomitant]
     Dosage: 75MG
     Route: 048
  4. DOXAZOSIN MESYLATE [Concomitant]
     Dosage: 8MG
     Route: 048
  5. OMEPRAZOLE [Concomitant]
     Dosage: 20MG
     Route: 048
  6. SIMVASTATIN [Concomitant]
     Dosage: 20MG
     Route: 048

REACTIONS (4)
  - CEREBELLAR SYNDROME [None]
  - DRUG TOXICITY [None]
  - ECZEMA [None]
  - MALAISE [None]
